FAERS Safety Report 5119162-6 (Version None)
Quarter: 2006Q3

REPORT INFORMATION
  Report Type: 
  Country: None (occurrence: None)
  Receive Date: 20060929
  Receipt Date: 20060929
  Transmission Date: 20061208
  Serious: Yes (Life-Threatening, Hospitalization, Other)
  Sender: FDA-Public Use
  Company Number: None

PATIENT
  Age: 38 Year
  Sex: Female
  Weight: 102.1954 kg

DRUGS (25)
  1. CYMBALTA [Suspect]
     Indication: MENTAL DISORDER
     Dosage: 60MG  DAILY  PO;   90   DAILY   PO
     Route: 048
     Dates: start: 20060717, end: 20060922
  2. CYMBALTA [Suspect]
     Indication: MENTAL DISORDER
     Dosage: 60MG  DAILY  PO;   90   DAILY   PO
     Route: 048
     Dates: start: 20060923, end: 20060928
  3. CYMBALTA [Suspect]
  4. SIMVASTATIN [Concomitant]
  5. LEVOTHYROXINE SODIUM [Concomitant]
  6. APAP TAB [Concomitant]
  7. ALLOPURINOL [Concomitant]
  8. WARFARIN SODIUM [Concomitant]
  9. ANUSOL/HYDROCORTISONE [Concomitant]
  10. HYDROCORTISONE [Concomitant]
  11. HYDROXYZINE   LACTOBACILLUS [Concomitant]
  12. ACCUCYME [Concomitant]
  13. METRONIDAZOLE [Concomitant]
  14. VANCOMYCIN [Concomitant]
  15. PIPERACILLIN AND TAZOBACTAM [Concomitant]
  16. NOREPINEPHRINE BITARTRATE [Concomitant]
  17. NOVOLOG [Concomitant]
  18. TOBRAMYCIN [Concomitant]
  19. NACL [Concomitant]
  20. HEPARIN [Concomitant]
  21. NEXIUM [Concomitant]
  22. NYSTATIN [Concomitant]
  23. MORPHINE [Concomitant]
  24. BALMEX [Concomitant]
  25. MULTI-VITAMIN [Concomitant]

REACTIONS (6)
  - HYPERTONIA [None]
  - HYPOTENSION [None]
  - METABOLIC ACIDOSIS [None]
  - RENAL FAILURE ACUTE [None]
  - RHABDOMYOLYSIS [None]
  - SEROTONIN SYNDROME [None]
